FAERS Safety Report 8749351 (Version 2)
Quarter: 2013Q1

REPORT INFORMATION
  Report Type: Spontaneous
  Country: CA (occurrence: None)
  Receive Date: 20120806
  Receipt Date: 20121119
  Transmission Date: 20140127
  Serious: Yes (Hospitalization)
  Sender: FDA-Public Use
  Company Number: DSA_58801_2012

PATIENT
  Age: 57 Year
  Sex: Female

DRUGS (5)
  1. DILTIAZEM HYDROCHLORIDE [Suspect]
     Indication: PRODUCT USED FOR UNKNOWN INDICATION
     Dosage: (DF ORAL)
     Route: 048
  2. BISOPROLOL [Concomitant]
  3. CANDESARTAN W/HYDROCHLOROTHIAZIDE [Concomitant]
  4. CAFFEINE W/PARACETAMOL [Concomitant]
  5. DIMENHYDRINATE [Concomitant]

REACTIONS (2)
  - Cardiogenic shock [None]
  - Poisoning [None]
